FAERS Safety Report 15007224 (Version 1)
Quarter: 2018Q2

REPORT INFORMATION
  Report Type: Spontaneous
  Country: US (occurrence: US)
  Receive Date: 20180613
  Receipt Date: 20180613
  Transmission Date: 20180711
  Serious: No
  Sender: FDA-Public Use
  Company Number: US-ACTELION-A-US2018-173452

PATIENT
  Age: 62 Year
  Sex: Male

DRUGS (1)
  1. VALCHLOR [Suspect]
     Active Substance: MECHLORETHAMINE
     Indication: MYCOSIS FUNGOIDES
     Dosage: 5 DAYS A WEEK
     Route: 061

REACTIONS (3)
  - Application site erythema [Unknown]
  - Application site burn [Not Recovered/Not Resolved]
  - Product administered at inappropriate site [Unknown]
